FAERS Safety Report 4598229-5 (Version None)
Quarter: 2005Q1

REPORT INFORMATION
  Report Type: 
  Country: None (occurrence: None)
  Receive Date: 20050204
  Receipt Date: 20040426
  Transmission Date: 20050727
  Serious: Yes (Death)
  Sender: FDA-Public Use
  Company Number: PHEH2004US04602

PATIENT
  Age: 47 Year
  Sex: Female

DRUGS (1)
  1. CLOZARIL [Suspect]
     Indication: SCHIZOPHRENIA
     Dosage: 400 MG, BID, ORAL
     Route: 048
     Dates: end: 20040421

REACTIONS (3)
  - ABDOMINAL DISTENSION [None]
  - INTESTINAL OBSTRUCTION [None]
  - VOMITING [None]
